FAERS Safety Report 10520136 (Version 3)
Quarter: 2014Q4

REPORT INFORMATION
  Report Type: Spontaneous
  Country: US (occurrence: US)
  Receive Date: 20141015
  Receipt Date: 20141105
  Transmission Date: 20150528
  Serious: Yes (Hospitalization, Other)
  Sender: FDA-Public Use
  Company Number: US-GILEAD-2014-0117422

PATIENT
  Age: 50 Year
  Sex: Female

DRUGS (3)
  1. ADCIRCA [Concomitant]
     Active Substance: TADALAFIL
  2. LETAIRIS [Suspect]
     Active Substance: AMBRISENTAN
     Indication: PRODUCT USED FOR UNKNOWN INDICATION
     Dosage: 10 MG, QD
     Route: 065
     Dates: start: 20100708
  3. TYVASO [Concomitant]
     Active Substance: TREPROSTINIL

REACTIONS (4)
  - Dehydration [Unknown]
  - Renal failure [Unknown]
  - Pneumonia [Unknown]
  - Hypotension [Unknown]
